FAERS Safety Report 22602205 (Version 1)
Quarter: 2023Q2

REPORT INFORMATION
  Report Type: Spontaneous
  Country: BR (occurrence: BR)
  Receive Date: 20230614
  Receipt Date: 20230614
  Transmission Date: 20230721
  Serious: Yes (Other)
  Sender: FDA-Public Use
  Company Number: BR-NAPPMUNDI-GBR-2023-0108424

PATIENT
  Age: 47 Year
  Sex: Female
  Weight: 62.9 kg

DRUGS (9)
  1. BUPRENORPHINE [Suspect]
     Active Substance: BUPRENORPHINE
     Indication: Pain
     Dosage: 10 MILLIGRAM
     Route: 062
     Dates: start: 20230531, end: 20230602
  2. LITHIUM CARBONATE [Concomitant]
     Active Substance: LITHIUM CARBONATE
     Indication: Mood swings
     Dosage: 300 MILLIGRAM, BID
     Route: 048
  3. LYRICA [Concomitant]
     Active Substance: PREGABALIN
     Indication: Depression
     Dosage: 75 MILLIGRAM, DAILY, BEFORE RESTIVA
     Route: 065
  4. LYRICA [Concomitant]
     Active Substance: PREGABALIN
     Dosage: 150 MILLIGRAM
     Route: 048
  5. SEROQUEL [Concomitant]
     Active Substance: QUETIAPINE FUMARATE
     Indication: Depression
     Dosage: 25 MILLIGRAM, DAILY
     Route: 048
  6. VITAMINS [Concomitant]
     Active Substance: VITAMINS
     Indication: Supplementation therapy
     Dosage: ONCE A DAY
     Route: 048
  7. AMITIZA [Concomitant]
     Active Substance: LUBIPROSTONE
     Indication: Irritable bowel syndrome
     Dosage: ONCE A DAY
     Route: 048
  8. PINAVERIUM BROMIDE [Concomitant]
     Active Substance: PINAVERIUM BROMIDE
     Indication: Irritable bowel syndrome
     Dosage: ONCE A DAY
     Route: 048
  9. OZEMPIC [Concomitant]
     Active Substance: SEMAGLUTIDE
     Indication: Body fat disorder
     Dosage: EVERY  15 DAYS
     Route: 058

REACTIONS (13)
  - Arrhythmia [Not Recovered/Not Resolved]
  - Hallucination [Not Recovered/Not Resolved]
  - Anxiety [Not Recovered/Not Resolved]
  - Nausea [Not Recovered/Not Resolved]
  - Vomiting [Recovered/Resolved]
  - Dizziness [Not Recovered/Not Resolved]
  - Speech disorder [Recovered/Resolved]
  - Computer vision syndrome [Not Recovered/Not Resolved]
  - Decreased appetite [Recovered/Resolved]
  - Somnolence [Not Recovered/Not Resolved]
  - Dyspnoea [Not Recovered/Not Resolved]
  - Confusional state [Not Recovered/Not Resolved]
  - Disturbance in attention [Not Recovered/Not Resolved]

NARRATIVE: CASE EVENT DATE: 20230601
